FAERS Safety Report 4736010-4 (Version None)
Quarter: 2005Q3

REPORT INFORMATION
  Report Type: 
  Country: None (occurrence: None)
  Receive Date: 20050805
  Receipt Date: 20050421
  Transmission Date: 20060218
  Serious: Yes (Hospitalization)
  Sender: FDA-Public Use
  Company Number: US-MERCK-0504USA03891

PATIENT
  Age: 37 Year
  Sex: Male
  Weight: 68 kg

DRUGS (10)
  1. VIOXX [Suspect]
     Indication: BACK INJURY
     Route: 048
     Dates: start: 20030101, end: 20040301
  2. SOMA [Concomitant]
     Route: 065
     Dates: start: 20000101, end: 20040101
  3. ASPIRIN [Concomitant]
     Route: 065
     Dates: start: 20030101
  4. PLAVIX [Concomitant]
     Route: 065
     Dates: start: 20030101, end: 20040101
  5. LIPITOR [Concomitant]
     Route: 065
     Dates: start: 20030101
  6. TOPROL-XL [Concomitant]
     Route: 065
     Dates: start: 20030101, end: 20040101
  7. LOPRESSOR [Concomitant]
     Route: 065
     Dates: start: 20030101, end: 20040101
  8. ZOCOR [Concomitant]
     Route: 065
  9. NEXIUM [Concomitant]
     Route: 065
  10. NITROGLYCERIN [Concomitant]
     Route: 065

REACTIONS (8)
  - ATHEROSCLEROSIS [None]
  - BLOOD CHOLESTEROL INCREASED [None]
  - CHEST PAIN [None]
  - DYSPEPSIA [None]
  - ECZEMA [None]
  - HYPERTENSION [None]
  - MYOCARDIAL INFARCTION [None]
  - ROTATOR CUFF SYNDROME [None]
